FAERS Safety Report 4314069-6 (Version None)
Quarter: 2004Q1

REPORT INFORMATION
  Report Type: 
  Country: None (occurrence: None)
  Receive Date: 20040305
  Receipt Date: 20040106
  Transmission Date: 20041129
  Serious: Yes (Hospitalization)
  Sender: FDA-Public Use
  Company Number: 2004UW00524

PATIENT
  Age: 37 Year
  Sex: Female

DRUGS (1)
  1. CRESTOR [Suspect]
     Dosage: 10 MG QD PO
     Route: 048
     Dates: start: 20031205

REACTIONS (4)
  - INFLUENZA [None]
  - PNEUMONIA [None]
  - PNEUMONIA INFLUENZAL [None]
  - RHABDOMYOLYSIS [None]
